FAERS Safety Report 21519420 (Version 1)
Quarter: 2022Q4

REPORT INFORMATION
  Report Type: Spontaneous
  Country: US (occurrence: None)
  Receive Date: 20221027
  Receipt Date: 20221027
  Transmission Date: 20230113
  Serious: No
  Sender: FDA-Public Use
  Company Number: None

PATIENT
  Age: 41 Year
  Sex: Female
  Weight: 119 kg

DRUGS (1)
  1. CILGAVIMAB\TIXAGEVIMAB [Suspect]
     Active Substance: CILGAVIMAB\TIXAGEVIMAB
     Indication: COVID-19 prophylaxis
     Dates: start: 20221018, end: 20221018

REACTIONS (7)
  - Dizziness [None]
  - Asthenia [None]
  - Headache [None]
  - Diarrhoea [None]
  - Fatigue [None]
  - Arthralgia [None]
  - Systemic lupus erythematosus [None]

NARRATIVE: CASE EVENT DATE: 20221019
